FAERS Safety Report 8460124-9 (Version None)
Quarter: 2012Q2

REPORT INFORMATION
  Report Type: 
  Country: None (occurrence: None)
  Receive Date: 20120622
  Receipt Date: 20120618
  Transmission Date: 20120825
  Serious: No
  Sender: FDA-Public Use
  Company Number: US-PFIZER INC-2012147268

PATIENT
  Age: 70 Year
  Sex: Female

DRUGS (2)
  1. NAPROXEN (ALEVE) [Suspect]
     Indication: TENSION HEADACHE
     Dosage: UNK
  2. IBUPROFEN (ADVIL) [Suspect]
     Indication: TENSION HEADACHE
     Dosage: UNK

REACTIONS (1)
  - DRUG INEFFECTIVE [None]
